FAERS Safety Report 22591268 (Version 1)
Quarter: 2023Q2

REPORT INFORMATION
  Report Type: Spontaneous
  Country: US (occurrence: US)
  Receive Date: 20230612
  Receipt Date: 20230612
  Transmission Date: 20230722
  Serious: No
  Sender: FDA-Public Use
  Company Number: US-RIGEL PHARMACEUTICALS, INC.-2022FOS000427

PATIENT
  Sex: Female
  Weight: 74.789 kg

DRUGS (1)
  1. TAVALISSE [Suspect]
     Active Substance: FOSTAMATINIB
     Indication: Hereditary haemolytic anaemia
     Dosage: 150 MG, QD
     Route: 048

REACTIONS (9)
  - Blood urine present [Unknown]
  - Dehydration [Unknown]
  - Haemoglobin decreased [Unknown]
  - Feeling abnormal [Unknown]
  - Unevaluable event [Unknown]
  - Drug ineffective for unapproved indication [Unknown]
  - Product dose omission issue [Unknown]
  - Off label use [Unknown]
  - Diarrhoea [Unknown]
